FAERS Safety Report 8819878 (Version 1)
Quarter: 2012Q4

REPORT INFORMATION
  Report Type: 
  Country: US (occurrence: US)
  Receive Date: 20121001
  Receipt Date: 20121001
  Transmission Date: 20130627
  Serious: No
  Sender: FDA-Public Use
  Company Number: US-ASTRAZENECA-2012SE72837

PATIENT
  Age: 56 Year
  Sex: Male
  Weight: 99.8 kg

DRUGS (3)
  1. CRESTOR [Suspect]
     Indication: BLOOD CHOLESTEROL ABNORMAL
     Route: 048
  2. CRESTOR [Suspect]
     Indication: BLOOD CHOLESTEROL ABNORMAL
     Route: 048
  3. ALLOPURINOL [Concomitant]
     Indication: GOUT

REACTIONS (2)
  - Diabetes mellitus [Unknown]
  - Intentional drug misuse [Unknown]
